FAERS Safety Report 8388567-2 (Version None)
Quarter: 2012Q2

REPORT INFORMATION
  Report Type: 
  Country: None (occurrence: None)
  Receive Date: 20120525
  Receipt Date: 20120521
  Transmission Date: 20120825
  Serious: Yes (Other)
  Sender: FDA-Public Use
  Company Number: US-AMGEN-USASP2011037681

PATIENT
  Age: 75 Year
  Sex: Female
  Weight: 73.016 kg

DRUGS (9)
  1. LOSARTAN POTASSIUM [Concomitant]
     Dosage: UNK
  2. MULTIVITAMIN                       /00097801/ [Concomitant]
     Dosage: UNK
  3. PRAVASTATIN [Concomitant]
     Indication: BLOOD CHOLESTEROL
     Dosage: UNK
     Route: 048
     Dates: start: 20100101
  4. PROLIA [Suspect]
     Indication: OSTEOPOROSIS POSTMENOPAUSAL
     Dosage: 60 MG, Q6MO
     Route: 058
     Dates: start: 20100803, end: 20110214
  5. VITAMIN D [Concomitant]
     Dosage: UNK
  6. VITAMIN C                          /00008001/ [Concomitant]
     Dosage: UNK
  7. HYZAAR [Concomitant]
     Indication: BLOOD PRESSURE
     Dosage: UNK
     Route: 048
     Dates: start: 20070101
  8. ATENOLOL [Concomitant]
     Dosage: UNK
     Route: 048
     Dates: start: 20010101
  9. CALCIUM [Concomitant]
     Dosage: UNK
     Route: 048

REACTIONS (9)
  - MUSCULOSKELETAL STIFFNESS [None]
  - OSTEOARTHRITIS [None]
  - PAIN IN EXTREMITY [None]
  - RIB FRACTURE [None]
  - DRUG INTOLERANCE [None]
  - BONE PAIN [None]
  - MUSCULOSKELETAL PAIN [None]
  - SPINAL FRACTURE [None]
  - PAIN IN JAW [None]
